FAERS Safety Report 19083770 (Version 1)
Quarter: 2021Q2

REPORT INFORMATION
  Report Type: Spontaneous
  Country: US (occurrence: US)
  Receive Date: 20210401
  Receipt Date: 20210401
  Transmission Date: 20210717
  Serious: Yes (Hospitalization)
  Sender: FDA-Public Use
  Company Number: US-GW PHARMA-202103USGW01334

PATIENT

DRUGS (2)
  1. EPIDIOLEX [Suspect]
     Active Substance: CANNABIDIOL
     Indication: LENNOX-GASTAUT SYNDROME
     Dosage: UNK
     Route: 048
     Dates: start: 20191023, end: 20210318
  2. EPIDIOLEX [Suspect]
     Active Substance: CANNABIDIOL
     Dosage: 720 MILLIGRAM, BID (DOSE INCREASED)
     Route: 048
     Dates: start: 20210319

REACTIONS (1)
  - Seizure cluster [Recovering/Resolving]

NARRATIVE: CASE EVENT DATE: 20210320
